FAERS Safety Report 5928753-1 (Version None)
Quarter: 2008Q4

REPORT INFORMATION
  Report Type: 
  Country: None (occurrence: None)
  Receive Date: 20081023
  Receipt Date: 20080617
  Transmission Date: 20090506
  Serious: Yes (Other)
  Sender: FDA-Public Use
  Company Number: JP-ELI_LILLY_AND_COMPANY-JP200806004227

PATIENT
  Sex: Female
  Weight: 47 kg

DRUGS (3)
  1. RALOXIFENE HYDROCHLORIDE [Suspect]
     Indication: OSTEOPOROSIS POSTMENOPAUSAL
     Dosage: 60 MG, DAILY (1/D)
     Route: 048
     Dates: start: 20050414
  2. OPALMON [Concomitant]
     Indication: LUMBAR SPINAL STENOSIS
     Dosage: 15 UG, DAILY (1/D)
     Route: 048
     Dates: start: 20051118, end: 20061006
  3. MECOBALAMIN [Concomitant]
     Indication: LUMBAR SPINAL STENOSIS
     Dosage: 1500 UG, DAILY (1/D)
     Route: 048
     Dates: start: 20051118

REACTIONS (1)
  - TOE OPERATION [None]
